FAERS Safety Report 4494302-0 (Version None)
Quarter: 2004Q4

REPORT INFORMATION
  Report Type: 
  Country: None (occurrence: None)
  Receive Date: 20041105
  Receipt Date: 20041029
  Transmission Date: 20050328
  Serious: Yes (Hospitalization)
  Sender: FDA-Public Use
  Company Number: US-GLAXOSMITHKLINE-A0531831A

PATIENT
  Age: 14 Year
  Sex: Female

DRUGS (2)
  1. LAMICTAL [Suspect]
     Indication: BIPOLAR DISORDER
     Route: 048
  2. ABILIFY [Concomitant]

REACTIONS (3)
  - ABNORMAL BEHAVIOUR [None]
  - ALOPECIA [None]
  - IMPULSIVE BEHAVIOUR [None]
